FAERS Safety Report 14063278 (Version 1)
Quarter: 2017Q4

REPORT INFORMATION
  Report Type: Spontaneous
  Country: US (occurrence: US)
  Receive Date: 20171009
  Receipt Date: 20171009
  Transmission Date: 20180321
  Serious: No
  Sender: FDA-Public Use
  Company Number: US-SUNOVION-2017SUN004216

PATIENT
  Age: 45 Year
  Sex: Female
  Weight: 57.6 kg

DRUGS (5)
  1. PLAVIX [Concomitant]
     Active Substance: CLOPIDOGREL BISULFATE
     Dosage: UNK
  2. LATUDA [Suspect]
     Active Substance: LURASIDONE HYDROCHLORIDE
     Dosage: 1/2 TABLET OF 40 MG, BID
     Route: 048
     Dates: start: 201709
  3. ASA [Concomitant]
     Active Substance: ASPIRIN
     Dosage: UNK, QD
     Route: 048
  4. CRESTOR [Concomitant]
     Active Substance: ROSUVASTATIN CALCIUM
     Dosage: UNK, QD
     Route: 048
  5. LATUDA [Suspect]
     Active Substance: LURASIDONE HYDROCHLORIDE
     Indication: BIPOLAR DISORDER
     Dosage: 20 MG, BID
     Route: 048

REACTIONS (5)
  - Blood pressure decreased [Unknown]
  - Drug ineffective [Unknown]
  - Drug administration error [Unknown]
  - Anxiety [Unknown]
  - Mood swings [Unknown]

NARRATIVE: CASE EVENT DATE: 201709
